FAERS Safety Report 7288445-6 (Version None)
Quarter: 2011Q1

REPORT INFORMATION
  Report Type: 
  Country: None (occurrence: None)
  Receive Date: 20110211
  Receipt Date: 20110208
  Transmission Date: 20110831
  Serious: Yes (Other)
  Sender: FDA-Public Use
  Company Number: A0912922A

PATIENT
  Sex: Female
  Weight: 70 kg

DRUGS (3)
  1. NO CONCURRENT MEDICATION [Concomitant]
  2. WELLBUTRIN XL [Suspect]
     Indication: DEPRESSION
     Dosage: 150MG PER DAY
     Route: 048
     Dates: start: 20101214, end: 20110113
  3. PAXIL CR [Suspect]
     Indication: DEPRESSION
     Dosage: 25MG PER DAY
     Route: 048
     Dates: start: 20101214

REACTIONS (5)
  - GRAND MAL CONVULSION [None]
  - INCONTINENCE [None]
  - TONGUE BITING [None]
  - POSTICTAL STATE [None]
  - MYALGIA [None]
